FAERS Safety Report 24903082 (Version 1)
Quarter: 2025Q1

REPORT INFORMATION
  Report Type: Spontaneous
  Country: US (occurrence: US)
  Receive Date: 20250130
  Receipt Date: 20250130
  Transmission Date: 20250408
  Serious: Yes (Hospitalization, Other)
  Sender: GRAVITI PHARMACEUTICALS PRIVATE LIMITED
  Company Number: US-GRAVITIPHARMA-GRA-2501-US-LIT-0029

PATIENT
  Age: 21 Year
  Sex: Female

DRUGS (3)
  1. BUPROPION HYDROCHLORIDE [Suspect]
     Active Substance: BUPROPION HYDROCHLORIDE
     Indication: Product used for unknown indication
     Route: 065
  2. GABAPENTIN [Suspect]
     Active Substance: GABAPENTIN
     Indication: Product used for unknown indication
     Route: 065
  3. PROPRANOLOL [Suspect]
     Active Substance: PROPRANOLOL HYDROCHLORIDE
     Indication: Product used for unknown indication
     Route: 065

REACTIONS (11)
  - Status epilepticus [Unknown]
  - Generalised tonic-clonic seizure [Recovered/Resolved]
  - Abnormal behaviour [Recovered/Resolved]
  - Tachycardia [Unknown]
  - Hyperhidrosis [Unknown]
  - Mucosal dryness [Unknown]
  - Mydriasis [Unknown]
  - Conjunctival hyperaemia [Unknown]
  - Metabolic acidosis [Unknown]
  - Ventricular tachycardia [Unknown]
  - Overdose [Unknown]
